FAERS Safety Report 11320112 (Version 1)
Quarter: 2015Q3

REPORT INFORMATION
  Report Type: Spontaneous
  Country: US (occurrence: None)
  Receive Date: 20150728
  Receipt Date: 20150728
  Transmission Date: 20151125
  Serious: Yes (Hospitalization)
  Sender: FDA-Public Use
  Company Number: None

PATIENT
  Age: 94 Year
  Sex: Male
  Weight: 63.6 kg

DRUGS (1)
  1. MIRTAZAPINE. [Suspect]
     Active Substance: MIRTAZAPINE
     Indication: DEPRESSION
     Dosage: 30 MG  AT BEDTIME  PO
     Route: 048
     Dates: start: 20150703, end: 20150724

REACTIONS (7)
  - Insomnia [None]
  - Confusional state [None]
  - Anxiety [None]
  - Hallucination [None]
  - Delusion [None]
  - Cerebrovascular accident [None]
  - Agitation [None]

NARRATIVE: CASE EVENT DATE: 20150720
